FAERS Safety Report 8051803-6 (Version None)
Quarter: 2012Q1

REPORT INFORMATION
  Report Type: 
  Country: None (occurrence: None)
  Receive Date: 20120118
  Receipt Date: 20120106
  Transmission Date: 20120608
  Serious: Yes (Hospitalization, Other)
  Sender: FDA-Public Use
  Company Number: FR-BRISTOL-MYERS SQUIBB COMPANY-15843311

PATIENT
  Age: 29 Year
  Sex: Female
  Weight: 63 kg

DRUGS (4)
  1. NORVIR [Suspect]
     Dates: start: 20110523
  2. TRUVADA [Suspect]
     Dates: start: 20110523
  3. REYATAZ [Suspect]
     Indication: HIV INFECTION
     Dates: start: 20081103
  4. PREZISTA [Suspect]
     Dates: start: 20110523

REACTIONS (4)
  - ABORTION SPONTANEOUS [None]
  - PYREXIA [None]
  - PREGNANCY [None]
  - CHOLELITHIASIS [None]
